FAERS Safety Report 7514588-5 (Version None)
Quarter: 2011Q2

REPORT INFORMATION
  Report Type: 
  Country: None (occurrence: None)
  Receive Date: 20110601
  Receipt Date: 20110524
  Transmission Date: 20111010
  Serious: Yes (Other)
  Sender: FDA-Public Use
  Company Number: GB-ELI_LILLY_AND_COMPANY-GB201105007268

PATIENT
  Age: 54 Year
  Sex: Female

DRUGS (3)
  1. BYETTA [Suspect]
     Dosage: 5 UG, UNK
  2. BYETTA [Suspect]
     Dosage: 10 UG, UNK
  3. METFORMIN HCL [Concomitant]
     Dosage: 1000 MG, BID

REACTIONS (1)
  - BLOOD GLUCOSE INCREASED [None]
